FAERS Safety Report 5758934-1 (Version None)
Quarter: 2008Q2

REPORT INFORMATION
  Report Type: 
  Country: None (occurrence: None)
  Receive Date: 20080604
  Receipt Date: 20080522
  Transmission Date: 20081010
  Serious: Yes (Hospitalization)
  Sender: FDA-Public Use
  Company Number: CA-GENENTECH-261591

PATIENT
  Sex: Male
  Weight: 80 kg

DRUGS (1)
  1. XOLAIR [Suspect]
     Indication: ASTHMA
     Dosage: 300 UNK, UNK
     Route: 058
     Dates: start: 20061126

REACTIONS (1)
  - ATRIAL FIBRILLATION [None]
